FAERS Safety Report 9509671 (Version 1)
Quarter: 2013Q3

REPORT INFORMATION
  Report Type: Spontaneous
  Country: US (occurrence: US)
  Receive Date: 20130909
  Receipt Date: 20130909
  Transmission Date: 20140515
  Serious: No
  Sender: FDA-Public Use
  Company Number: US-BRISTOL-MYERS SQUIBB COMPANY-17191966

PATIENT
  Age: 26 Year
  Sex: Female

DRUGS (1)
  1. ABILIFY [Suspect]
     Dosage: 1DF: 10MG , 1/2 IN THE MORNING AND 1/2 IN THE EVENING.
     Dates: start: 20121130

REACTIONS (1)
  - Pregnancy [Unknown]
